FAERS Safety Report 5442979-5 (Version None)
Quarter: 2007Q3

REPORT INFORMATION
  Report Type: 
  Country: None (occurrence: None)
  Receive Date: 20070821
  Receipt Date: 20070809
  Transmission Date: 20080115
  Serious: Yes (Other)
  Sender: FDA-Public Use
  Company Number: AECAN200700050

PATIENT
  Age: 59 Year
  Sex: Male
  Weight: 76 kg

DRUGS (3)
  1. IMMUNE GLOBULIN (HUMAN) [Suspect]
     Indication: POLYMYOSITIS
     Dosage: 40 GM; 1X; IV
     Route: 042
     Dates: start: 20061211, end: 20061211
  2. GAMUNEX [Suspect]
     Indication: POLYMYOSITIS
     Dosage: 10 GM; 1X; IV
     Route: 042
     Dates: start: 20061211, end: 20061211
  3. IMMUNE GLOBULIN INTRAVENOUS (HUMAN) [Suspect]
     Indication: POLYMYOSITIS
     Dosage: IV
     Route: 042
     Dates: start: 20061127

REACTIONS (1)
  - THROMBOPHLEBITIS [None]
